FAERS Safety Report 18520251 (Version 2)
Quarter: 2021Q1

REPORT INFORMATION
  Report Type: Spontaneous
  Country: US (occurrence: US)
  Receive Date: 20201119
  Receipt Date: 20210211
  Transmission Date: 20210419
  Serious: Yes (Other)
  Sender: FDA-Public Use
  Company Number: US-REGENERON PHARMACEUTICALS, INC.-2020-89157

PATIENT

DRUGS (2)
  1. EYLEA [Suspect]
     Active Substance: AFLIBERCEPT
     Dosage: 2 MG, Q8WK; IN BOTH EYES AFTER THE FIRST 3 MONTHS, LEADING TO A TOTAL DOSE OF 28MG
     Route: 031
  2. EYLEA [Suspect]
     Active Substance: AFLIBERCEPT
     Indication: DIABETIC RETINAL OEDEMA
     Dosage: 2 MG, Q4WK; IN BOTH EYES FOR 3 MONTHS INITIALLY
     Route: 031

REACTIONS (3)
  - Thrombotic microangiopathy [Unknown]
  - Acute kidney injury [Unknown]
  - Product use issue [Unknown]
